FAERS Safety Report 6662610-0 (Version None)
Quarter: 2010Q1

REPORT INFORMATION
  Report Type: 
  Country: None (occurrence: None)
  Receive Date: 20100329
  Receipt Date: 20100319
  Transmission Date: 20100710
  Serious: Yes (Other)
  Sender: FDA-Public Use
  Company Number: AMI0019415

PATIENT
  Age: 60 Year
  Sex: Female

DRUGS (10)
  1. TIMPOTIC XE GEL-FORMING SOLUTION [Suspect]
     Dosage: 046
  2. NASONEX [Suspect]
     Dosage: 100 MICROG DAILY - NASAL
     Route: 045
  3. ASPIRIN [Concomitant]
  4. ACETAMINOPHEN (ATASOL) [Concomitant]
  5. CELEXA [Concomitant]
  6. ATORVASTAATIN CALCIUM (LJPITOR) [Concomitant]
  7. PRILOSEC [Concomitant]
  8. VITAMINS (UNSPECIFIED) [Concomitant]
  9. LISINOPRIL [Concomitant]
  10. CETIRIZINE HYDROCHLORIDE [Concomitant]

REACTIONS (7)
  - COUGH [None]
  - EYE DISORDER [None]
  - EYE IRRITATION [None]
  - GLAUCOMA [None]
  - OCULAR HYPERAEMIA [None]
  - PHOTOPSIA [None]
  - VITREOUS FLOATERS [None]
